FAERS Safety Report 7912229-6 (Version None)
Quarter: 2011Q4

REPORT INFORMATION
  Report Type: 
  Country: None (occurrence: None)
  Receive Date: 20111114
  Receipt Date: 20111107
  Transmission Date: 20120403
  Serious: Yes (Disabling)
  Sender: FDA-Public Use
  Company Number: US-MERCK-1111USA00897

PATIENT
  Age: 76 Year
  Sex: Female

DRUGS (3)
  1. CALCIUM CITRATE [Concomitant]
     Route: 065
  2. FOSAMAX [Suspect]
     Route: 048
     Dates: start: 20081101, end: 20111019
  3. METOPROLOL [Concomitant]
     Route: 065

REACTIONS (1)
  - FOOT FRACTURE [None]
